FAERS Safety Report 7422930-9 (Version None)
Quarter: 2011Q2

REPORT INFORMATION
  Report Type: 
  Country: None (occurrence: None)
  Receive Date: 20110405
  Receipt Date: 20110323
  Transmission Date: 20111010
  Serious: Yes (Other)
  Sender: FDA-Public Use
  Company Number: 2011027980

PATIENT
  Sex: Male

DRUGS (1)
  1. PRIVIGEN [Suspect]
     Dosage: 90 G QD, 180 G OVER TWO DAYS; INTRAVENOUS (NOT OTHERWISE SPECIFIED)
     Route: 042
     Dates: start: 20110318, end: 20110319

REACTIONS (1)
  - HAEMOGLOBIN DECREASED [None]
